FAERS Safety Report 24408215 (Version 1)
Quarter: 2024Q4

REPORT INFORMATION
  Report Type: Spontaneous
  Country: US (occurrence: US)
  Receive Date: 20241007
  Receipt Date: 20241007
  Transmission Date: 20250115
  Serious: Yes (Death, Hospitalization, Other)
  Sender: BAYER
  Company Number: US-BAYER-2024A137616

PATIENT
  Age: 44 Year
  Sex: Male

DRUGS (6)
  1. REGORAFENIB [Suspect]
     Active Substance: REGORAFENIB
     Indication: Colon cancer metastatic
     Dosage: UNK
  2. REGORAFENIB [Suspect]
     Active Substance: REGORAFENIB
     Indication: Osteosarcoma
  3. REGORAFENIB [Suspect]
     Active Substance: REGORAFENIB
     Indication: Pulmonary cavitation
  4. GEMZAR [Concomitant]
     Active Substance: GEMCITABINE HYDROCHLORIDE
     Dosage: UNK
  5. TAXOTERE [Concomitant]
     Active Substance: DOCETAXEL
     Dosage: UNK
  6. Antifungal [Concomitant]

REACTIONS (6)
  - Acute respiratory failure [Fatal]
  - Pulmonary cavitation [None]
  - Pneumonia necrotising [None]
  - Productive cough [None]
  - Dyspnoea [None]
  - Off label use [None]
